FAERS Safety Report 7925915-9 (Version None)
Quarter: 2011Q4

REPORT INFORMATION
  Report Type: 
  Country: None (occurrence: None)
  Receive Date: 20111118
  Receipt Date: 20110414
  Transmission Date: 20120403
  Serious: No
  Sender: FDA-Public Use
  Company Number: US-AMGEN-USASP2011019927

PATIENT
  Sex: Female

DRUGS (10)
  1. OMEPRAZOLE [Concomitant]
     Dosage: 40 MG, UNK
  2. WELLBUTRIN XL [Concomitant]
     Dosage: 150 MG, UNK
  3. TRILEPTAL [Concomitant]
     Dosage: 600 MG, UNK
     Route: 048
  4. EFFEXOR XR [Concomitant]
     Dosage: 150 MG, UNK
     Route: 048
  5. ENBREL [Suspect]
     Indication: PRODUCT USED FOR UNKNOWN INDICATION
     Dosage: 50 MG, QWK
     Route: 058
  6. LAMICTAL [Concomitant]
     Dosage: 100 MG, UNK
  7. ABILIFY [Concomitant]
     Dosage: 10 MG, UNK
     Route: 048
  8. ATIVAN [Concomitant]
     Dosage: 1 MG, UNK
     Route: 048
  9. METHOTREXATE [Concomitant]
     Dosage: 2.5 MG, UNK
     Route: 048
  10. VICODIN [Concomitant]
     Dosage: UNK
     Route: 048

REACTIONS (4)
  - NIGHT SWEATS [None]
  - FATIGUE [None]
  - COUGH [None]
  - OROPHARYNGEAL PAIN [None]
